FAERS Safety Report 5722493-X (Version None)
Quarter: 2008Q2

REPORT INFORMATION
  Report Type: 
  Country: None (occurrence: None)
  Receive Date: 20080429
  Receipt Date: 20071008
  Transmission Date: 20081010
  Serious: No
  Sender: FDA-Public Use
  Company Number: US-ASTRAZENECA-2007UW23350

PATIENT
  Age: 38 Year
  Sex: Female
  Weight: 62.6 kg

DRUGS (1)
  1. NEXIUM [Suspect]
     Indication: GASTROOESOPHAGEAL REFLUX DISEASE
     Dosage: 5 COUNT SAMPLE
     Route: 048
     Dates: start: 20071001

REACTIONS (2)
  - DRUG EFFECT DECREASED [None]
  - OESOPHAGEAL DISORDER [None]
